FAERS Safety Report 25842503 (Version 1)
Quarter: 2025Q3

REPORT INFORMATION
  Report Type: Report from Study
  Country: CA (occurrence: CA)
  Receive Date: 20250924
  Receipt Date: 20250924
  Transmission Date: 20251021
  Serious: Yes (Other)
  Sender: TAKEDA
  Company Number: CA-TAKEDA-2025TUS082965

PATIENT
  Sex: Female

DRUGS (13)
  1. VEDOLIZUMAB [Suspect]
     Active Substance: VEDOLIZUMAB
     Indication: Crohn^s disease
  2. PENTASA [Concomitant]
     Active Substance: MESALAMINE
  3. POTASSIUM CHLORIDE [Concomitant]
     Active Substance: POTASSIUM CHLORIDE
  4. MAGNESIUM [Concomitant]
     Active Substance: MAGNESIUM
  5. TYLENOL EXTRA STRENGTH [Concomitant]
     Active Substance: ACETAMINOPHEN
  6. TUMS [Concomitant]
     Active Substance: CALCIUM CARBONATE
  7. EBASTINE [Concomitant]
     Active Substance: EBASTINE
  8. PREDNISONE [Concomitant]
     Active Substance: PREDNISONE
  9. MOMETASONE [Concomitant]
     Active Substance: MOMETASONE
  10. TOBRADEX [Concomitant]
     Active Substance: DEXAMETHASONE\TOBRAMYCIN
  11. RESTORIL [Concomitant]
     Active Substance: TEMAZEPAM
  12. TRAMADOL [Concomitant]
     Active Substance: TRAMADOL
  13. LOPERAMIDE [Concomitant]
     Active Substance: LOPERAMIDE

REACTIONS (2)
  - Peripheral swelling [Recovering/Resolving]
  - Localised infection [Recovered/Resolved]
